FAERS Safety Report 7078606-3 (Version None)
Quarter: 2010Q4

REPORT INFORMATION
  Report Type: 
  Country: None (occurrence: None)
  Receive Date: 20101101
  Receipt Date: 20101101
  Transmission Date: 20110411
  Serious: No
  Sender: FDA-Public Use
  Company Number: None

PATIENT
  Age: 41 Year
  Sex: Male
  Weight: 77.1115 kg

DRUGS (1)
  1. NAPROXEN [Suspect]
     Indication: ARTHRALGIA
     Dosage: 500MG 2X DAILY PO
     Route: 048
     Dates: start: 20100716, end: 20100725

REACTIONS (4)
  - DIZZINESS [None]
  - NAUSEA [None]
  - TINNITUS [None]
  - VOMITING [None]
